FAERS Safety Report 5780886-9 (Version None)
Quarter: 2008Q2

REPORT INFORMATION
  Report Type: 
  Country: None (occurrence: None)
  Receive Date: 20080620
  Receipt Date: 20080613
  Transmission Date: 20081010
  Serious: Yes (Other)
  Sender: FDA-Public Use
  Company Number: US-PFIZER INC-2008036552

PATIENT
  Sex: Male
  Weight: 77.272 kg

DRUGS (10)
  1. VIAGRA [Suspect]
     Indication: ERECTILE DYSFUNCTION
     Dosage: DAILY DOSE:100MG
  2. ANTIHYPERTENSIVES [Suspect]
     Indication: BLOOD PRESSURE
  3. METOPROLOL - SLOW RELEASE [Concomitant]
  4. PRAVASTATIN [Concomitant]
  5. IBUROFEN [Concomitant]
  6. RANITIDINE HYDROCHLORIDE [Concomitant]
  7. MAALOX [Concomitant]
  8. AFRIN [Concomitant]
  9. ASPIRIN [Concomitant]
  10. BETACAROTENE [Concomitant]

REACTIONS (2)
  - DRUG INEFFECTIVE [None]
  - KNEE ARTHROPLASTY [None]
